FAERS Safety Report 15114545 (Version 1)
Quarter: 2018Q3

REPORT INFORMATION
  Report Type: Report from Study
  Country: US (occurrence: US)
  Receive Date: 20180706
  Receipt Date: 20180706
  Transmission Date: 20181010
  Serious: No
  Sender: FDA-Public Use
  Company Number: US-IPSEN BIOPHARMACEUTICALS, INC.-2018-09510

PATIENT
  Age: 62 Year
  Sex: Female

DRUGS (7)
  1. AMITRIPTYLINE [Concomitant]
     Active Substance: AMITRIPTYLINE
  2. LOSARTAN. [Concomitant]
     Active Substance: LOSARTAN
  3. DYSPORT [Suspect]
     Active Substance: ABOBOTULINUMTOXINA
     Indication: OFF LABEL USE
  4. NEURONTIN [Concomitant]
     Active Substance: GABAPENTIN
  5. FOLIC ACID. [Concomitant]
     Active Substance: FOLIC ACID
  6. DYSPORT [Suspect]
     Active Substance: ABOBOTULINUMTOXINA
     Indication: DROOLING
     Dosage: 250 UNITS
     Route: 065
  7. METHOTREXATE. [Concomitant]
     Active Substance: METHOTREXATE

REACTIONS (2)
  - Off label use [Unknown]
  - Skin atrophy [Unknown]

NARRATIVE: CASE EVENT DATE: 20180404
